FAERS Safety Report 6288209-6 (Version None)
Quarter: 2009Q3

REPORT INFORMATION
  Report Type: 
  Country: None (occurrence: None)
  Receive Date: 20090729
  Receipt Date: 20090721
  Transmission Date: 20100115
  Serious: No
  Sender: FDA-Public Use
  Company Number: US-BAYER-200927511NA

PATIENT
  Sex: Female

DRUGS (1)
  1. MIRENA [Suspect]
     Indication: CONTRACEPTION
     Dosage: AS USED: 20 ?G
     Route: 015
     Dates: start: 20090216

REACTIONS (4)
  - IUCD COMPLICATION [None]
  - NAUSEA [None]
  - PREGNANCY TEST NEGATIVE [None]
  - PREGNANCY TEST URINE POSITIVE [None]
